FAERS Safety Report 5413662-7 (Version None)
Quarter: 2007Q3

REPORT INFORMATION
  Report Type: 
  Country: None (occurrence: None)
  Receive Date: 20070814
  Receipt Date: 20070808
  Transmission Date: 20080115
  Serious: Yes (Other)
  Sender: FDA-Public Use
  Company Number: PHNU2006DE04188

PATIENT
  Age: 70 Year
  Sex: Male
  Weight: 84 kg

DRUGS (6)
  1. ZOMETA [Suspect]
     Indication: MULTIPLE MYELOMA
     Dosage: 4 MG, QMO
     Route: 042
     Dates: start: 20030601, end: 20061201
  2. ALKERAN [Suspect]
     Indication: PLASMACYTOMA
     Dosage: 50 MG, UNK
     Route: 065
     Dates: start: 20030601, end: 20040201
  3. ALKERAN [Suspect]
     Dosage: 50 MG, UNK
     Route: 065
     Dates: start: 20041201, end: 20050501
  4. PREDNISOLONE [Suspect]
     Route: 065
     Dates: start: 20030601, end: 20040201
  5. PREDNISOLONE [Suspect]
     Route: 065
     Dates: start: 20041201, end: 20050501
  6. ROFERON-A [Suspect]
     Indication: PLASMACYTOMA
     Route: 065
     Dates: end: 20060101

REACTIONS (13)
  - BIOPSY BONE ABNORMAL [None]
  - DENTAL TREATMENT [None]
  - ORAL SURGERY [None]
  - OSTEOMYELITIS [None]
  - OSTEONECROSIS [None]
  - OSTEOTOMY [None]
  - PRIMARY SEQUESTRUM [None]
  - PURULENCE [None]
  - SINGLE PHOTON EMISSION COMPUTERISED TOMOGRAM ABNORMAL [None]
  - SINUS OPERATION [None]
  - SINUSITIS [None]
  - TOOTH EXTRACTION [None]
  - WOUND TREATMENT [None]
